FAERS Safety Report 21489887 (Version 1)
Quarter: 2022Q4

REPORT INFORMATION
  Report Type: Report from Study
  Country: US (occurrence: US)
  Receive Date: 20221021
  Receipt Date: 20221021
  Transmission Date: 20230113
  Serious: Yes (Hospitalization)
  Sender: FDA-Public Use
  Company Number: US-BoehringerIngelheim-2021-BI-112226

PATIENT
  Age: 74 Year
  Sex: Female

DRUGS (2)
  1. OFEV [Suspect]
     Active Substance: NINTEDANIB
     Indication: Idiopathic pulmonary fibrosis
     Dosage: LOT: 103969
     Route: 048
     Dates: start: 20210617
  2. OFEV [Suspect]
     Active Substance: NINTEDANIB
     Route: 048
     Dates: start: 20210616

REACTIONS (32)
  - Fall [Unknown]
  - Arthropathy [Unknown]
  - Chest pain [Not Recovered/Not Resolved]
  - Dyspnoea [Unknown]
  - Musculoskeletal chest pain [Not Recovered/Not Resolved]
  - Diarrhoea [Recovering/Resolving]
  - Abdominal discomfort [Not Recovered/Not Resolved]
  - Nausea [Not Recovered/Not Resolved]
  - Glossitis [Recovering/Resolving]
  - Glossodynia [Recovering/Resolving]
  - Weight increased [Unknown]
  - White blood cell count increased [Unknown]
  - Back pain [Unknown]
  - Fatigue [Unknown]
  - Gait disturbance [Not Recovered/Not Resolved]
  - Abdominal discomfort [Not Recovered/Not Resolved]
  - Pain in extremity [Unknown]
  - Fluid retention [Not Recovered/Not Resolved]
  - Vomiting [Unknown]
  - Foot fracture [Unknown]
  - Decreased appetite [Recovering/Resolving]
  - Cough [Unknown]
  - Abdominal pain upper [Unknown]
  - Productive cough [Unknown]
  - Sputum discoloured [Unknown]
  - Lung disorder [Unknown]
  - Tremor [Not Recovered/Not Resolved]
  - Abdominal distension [Not Recovered/Not Resolved]
  - Tongue erythema [Unknown]
  - Tongue discomfort [Unknown]
  - Abdominal pain upper [Not Recovered/Not Resolved]
  - Radiculopathy [Unknown]

NARRATIVE: CASE EVENT DATE: 20210621
